FAERS Safety Report 15884316 (Version 1)
Quarter: 2019Q1

REPORT INFORMATION
  Report Type: Spontaneous
  Country: US (occurrence: US)
  Receive Date: 20190129
  Receipt Date: 20190129
  Transmission Date: 20190417
  Serious: No
  Sender: FDA-Public Use
  Company Number: US-PFIZER INC-2018535747

PATIENT
  Age: 11 Month
  Sex: Male

DRUGS (1)
  1. EUCRISA [Suspect]
     Active Substance: CRISABOROLE
     Dosage: UNK, 2X/DAY (APPLY TO AFFECTED AREA TWICE A DAY)
     Dates: start: 201812

REACTIONS (3)
  - Rash erythematous [Unknown]
  - Drug ineffective [Unknown]
  - Product use issue [Unknown]
